FAERS Safety Report 7364641-4 (Version None)
Quarter: 2011Q1

REPORT INFORMATION
  Report Type: 
  Country: None (occurrence: None)
  Receive Date: 20110321
  Receipt Date: 20110310
  Transmission Date: 20110831
  Serious: Yes (Hospitalization)
  Sender: FDA-Public Use
  Company Number: US-JNJFOC-20100904025

PATIENT
  Sex: Female
  Weight: 77.3 kg

DRUGS (13)
  1. GOLIMUMAB [Suspect]
     Indication: RHEUMATOID ARTHRITIS
     Route: 058
  2. PREDNISONE [Concomitant]
     Route: 048
  3. AMBIEN [Concomitant]
     Route: 048
  4. CARAFATE [Concomitant]
     Route: 048
  5. MULTIPLE VITAMIN [Concomitant]
     Route: 048
  6. ULTRAM [Concomitant]
     Route: 048
  7. METHOTREXATE [Concomitant]
     Route: 048
  8. ASPIRIN [Concomitant]
     Route: 048
  9. CALCIUM [Concomitant]
     Route: 048
  10. GOLIMUMAB [Suspect]
     Route: 058
  11. LEVAQUIN [Concomitant]
     Route: 048
  12. PRILOSEC [Concomitant]
     Route: 048
  13. E VITAMIN [Concomitant]
     Route: 048

REACTIONS (1)
  - NON-CARDIAC CHEST PAIN [None]
